FAERS Safety Report 21338345 (Version 1)
Quarter: 2022Q3

REPORT INFORMATION
  Report Type: Spontaneous
  Country: GB (occurrence: GB)
  Receive Date: 20220915
  Receipt Date: 20220915
  Transmission Date: 20221027
  Serious: Yes (Life-Threatening, Other)
  Sender: FDA-Public Use
  Company Number: None

PATIENT
  Age: 52 Year
  Sex: Male
  Weight: 92 kg

DRUGS (12)
  1. DOXYCYCLINE [Suspect]
     Active Substance: DOXYCYCLINE
     Indication: Cellulitis
     Dosage: AFTER 3 DOSES DEVELOPED REACTIONS
     Dates: start: 20220830
  2. ACYCLOVIR [Concomitant]
     Active Substance: ACYCLOVIR
     Dosage: 1 DF, ALTERNATE DAY
     Dates: start: 20220315
  3. AMITRIPTYLINE HYDROCHLORIDE [Concomitant]
     Active Substance: AMITRIPTYLINE HYDROCHLORIDE
     Dosage: 3 DF, 1X/DAY, EACH NIGHT
     Dates: start: 20220510
  4. CITALOPRAM [Concomitant]
     Active Substance: CITALOPRAM HYDROBROMIDE
     Dosage: 2 DF, 1X/DAY
     Dates: start: 20220510
  5. CLARITHROMYCIN [Concomitant]
     Active Substance: CLARITHROMYCIN
     Dosage: 1 DF
     Dates: start: 20220901
  6. DEXAMETHASONE SODIUM PHOSPHATE [Concomitant]
     Active Substance: DEXAMETHASONE SODIUM PHOSPHATE
     Dosage: 1 DF, 2X/DAY, ONE DROP AS DIRECTED
     Dates: start: 20220315
  7. IPINNIA XL [Concomitant]
     Indication: Restless legs syndrome
     Dosage: 3 DF, 1X/DAY
     Dates: start: 20220406
  8. NAPROXEN [Concomitant]
     Active Substance: NAPROXEN
     Indication: Pain
     Dosage: 1 DF, 2X/DAY
     Dates: start: 20220406
  9. OLANZAPINE [Concomitant]
     Active Substance: OLANZAPINE
     Dosage: 1 DF, 1X/DAY, AT NIGHT TIME
     Dates: start: 20220718, end: 20220815
  10. OMEPRAZOLE [Concomitant]
     Active Substance: OMEPRAZOLE
     Indication: Prophylaxis against gastrointestinal ulcer
     Dosage: 2 DF, 1X/DAY, TO PROTECT STOMACH WHILE ON NAPROXEN
     Dates: start: 20220510
  11. PREGABALIN [Concomitant]
     Active Substance: PREGABALIN
     Indication: Restless legs syndrome
     Dosage: 1 DF, 2X/DAY
     Dates: start: 20220406
  12. PROMETHAZINE HYDROCHLORIDE [Concomitant]
     Active Substance: PROMETHAZINE HYDROCHLORIDE
     Indication: Anxiety
     Dosage: 1 DF, AT NIGHT
     Dates: start: 20220601

REACTIONS (6)
  - Sensation of foreign body [Unknown]
  - Diarrhoea [Recovered/Resolved]
  - Vomiting [Recovered/Resolved]
  - Dyspnoea [Recovered/Resolved]
  - Swollen tongue [Recovered/Resolved]
  - Pharyngeal swelling [Recovered/Resolved]

NARRATIVE: CASE EVENT DATE: 20220901
